FAERS Safety Report 8200642-1 (Version None)
Quarter: 2012Q1

REPORT INFORMATION
  Report Type: 
  Country: None (occurrence: None)
  Receive Date: 20120223
  Receipt Date: 20120206
  Transmission Date: 20120608
  Serious: Yes (Death)
  Sender: FDA-Public Use
  Company Number: 2012PROUSA01066

PATIENT
  Age: 69 Year
  Sex: Male
  Weight: 107.5 kg

DRUGS (10)
  1. PROVENGE [Suspect]
  2. CYMBALTA [Concomitant]
  3. AMLODIPINE [Concomitant]
  4. PROVENGE [Suspect]
     Indication: PROSTATE CANCER METASTATIC
     Dosage: 250 ML, SINGLE, INTRAVENOUS, 250 ML, SINGLE, INTRAVENOUS
     Route: 042
     Dates: start: 20101210, end: 20101210
  5. PROVENGE [Suspect]
     Indication: PROSTATE CANCER METASTATIC
     Dosage: 250 ML, SINGLE, INTRAVENOUS, 250 ML, SINGLE, INTRAVENOUS
     Route: 042
     Dates: start: 20110107, end: 20110107
  6. PROVENGE [Suspect]
     Indication: PROSTATE CANCER METASTATIC
     Dosage: 250 ML, SINGLE, INTRAVENOUS, 250 ML, SINGLE, INTRAVENOUS
     Route: 042
     Dates: start: 20101119, end: 20101119
  7. CALCITROL /00508501 (CALCIUM CARBONATE, ERGOCALCIFEROL, RETINOL) [Concomitant]
  8. PROVENGE [Suspect]
     Dosage: 300715
  9. ESTRAMUSTINE (ESTRAMUSTINE) [Concomitant]
  10. HYDROMORPHONE HCL [Concomitant]

REACTIONS (1)
  - DISEASE PROGRESSION [None]
